FAERS Safety Report 10069092 (Version 1)
Quarter: 2014Q2

REPORT INFORMATION
  Report Type: Spontaneous
  Country: US (occurrence: US)
  Receive Date: 20140409
  Receipt Date: 20140409
  Transmission Date: 20141212
  Serious: No
  Sender: FDA-Public Use
  Company Number: US-B.I. PHARMACEUTICALS,INC./RIDGEFIELD-2014-BI-13906BP

PATIENT
  Age: 93 Year
  Sex: Female

DRUGS (2)
  1. GILOTRIF [Suspect]
     Indication: NON-SMALL CELL LUNG CANCER
     Dosage: 20 MG
     Route: 048
  2. GILOTRIF [Suspect]
     Dosage: 40 MG
     Route: 048

REACTIONS (1)
  - Skin ulcer [Not Recovered/Not Resolved]
